FAERS Safety Report 4886658-1 (Version None)
Quarter: 2006Q1

REPORT INFORMATION
  Report Type: 
  Country: None (occurrence: None)
  Receive Date: 20060119
  Receipt Date: 20051220
  Transmission Date: 20060701
  Serious: Yes (Life-Threatening, Hospitalization)
  Sender: FDA-Public Use
  Company Number: 221108

PATIENT
  Age: 58 Year
  Sex: Female
  Weight: 75 kg

DRUGS (4)
  1. HERCEPTIN [Suspect]
     Indication: BREAST CANCER METASTATIC
     Dosage: 6 MG/KG,
     Dates: start: 20050902
  2. DOCETAXEL (DOCETAXEL) [Suspect]
     Indication: BREAST CANCER METASTATIC
     Dosage: 127.5 MG/M2,
     Dates: start: 20050902
  3. CAPECITABINE (CAPECITABINE) [Suspect]
     Indication: BREAST CANCER METASTATIC
     Dosage: 3000 MG, ORAL
     Route: 048
     Dates: start: 20050902
  4. DOCETAXEL(DOCETAXEL) [Suspect]

REACTIONS (3)
  - DYSPNOEA [None]
  - METASTASES TO LUNG [None]
  - NEUTROPENIA [None]
